FAERS Safety Report 19287970 (Version 1)
Quarter: 2021Q2

REPORT INFORMATION
  Report Type: Report from Study
  Country: US (occurrence: US)
  Receive Date: 20210522
  Receipt Date: 20210522
  Transmission Date: 20210717
  Serious: No
  Sender: FDA-Public Use
  Company Number: NVSC2021US110550

PATIENT
  Sex: Male
  Weight: 99.77 kg

DRUGS (1)
  1. TREPROSTINIL. [Suspect]
     Active Substance: TREPROSTINIL
     Indication: PULMONARY ARTERIAL HYPERTENSION
     Dosage: UNK UNK, CONT (40 NG/KG/MIN)
     Route: 042
     Dates: start: 20210501

REACTIONS (4)
  - Palpitations [Unknown]
  - Dysphagia [Unknown]
  - Pain [Unknown]
  - Diarrhoea [Unknown]
